FAERS Safety Report 9974101 (Version 1)
Quarter: 2014Q1

REPORT INFORMATION
  Report Type: Report from Study
  Country: US (occurrence: US)
  Receive Date: 20140306
  Receipt Date: 20140306
  Transmission Date: 20141002
  Serious: No
  Sender: FDA-Public Use
  Company Number: US-ABBVIE-13P-163-1155276-00

PATIENT
  Sex: Female
  Weight: 78.54 kg

DRUGS (6)
  1. HUMIRA [Suspect]
     Indication: PSORIASIS
     Route: 058
     Dates: start: 2011
  2. HUMIRA [Suspect]
     Indication: PITYRIASIS RUBRA PILARIS
  3. METFORMIN [Concomitant]
     Indication: DIABETES MELLITUS
  4. OMEPRAZOLE [Concomitant]
     Indication: IRRITABLE BOWEL SYNDROME
  5. ATENOLOL [Concomitant]
     Indication: BLOOD PRESSURE
  6. LIPITOR [Concomitant]
     Indication: BLOOD CHOLESTEROL

REACTIONS (2)
  - Off label use [Unknown]
  - Psoriasis [Not Recovered/Not Resolved]
